FAERS Safety Report 20532105 (Version 1)
Quarter: 2022Q1

REPORT INFORMATION
  Report Type: Spontaneous
  Country: AT (occurrence: AT)
  Receive Date: 20220301
  Receipt Date: 20220301
  Transmission Date: 20220423
  Serious: Yes (Hospitalization, Disabling, Other)
  Sender: FDA-Public Use
  Company Number: AT-AMERICAN REGENT INC-20150542

PATIENT
  Age: 40 Year
  Sex: Male
  Weight: 57 kg

DRUGS (12)
  1. FERINJECT [Suspect]
     Active Substance: FERRIC CARBOXYMALTOSE
     Indication: Iron deficiency
     Dosage: 50 MG,1 IN 8 WK, OVER A PERIOD OF 20-40 MINS
     Dates: start: 201209, end: 20140613
  2. FERINJECT [Suspect]
     Active Substance: FERRIC CARBOXYMALTOSE
     Dosage: 1000 MG ,1 IN 1M (REPORTED AS APPROX. 1.5 YRS PRIOR TO REPORTING)
     Dates: end: 20140613
  3. VENOFER [Suspect]
     Active Substance: IRON SUCROSE
     Indication: Microcytic anaemia
     Dosage: UNKNOWN
  4. VENOFER [Suspect]
     Active Substance: IRON SUCROSE
     Indication: Iron deficiency anaemia
  5. ZOLEDRONIC ACID [Suspect]
     Active Substance: ZOLEDRONIC ACID
     Indication: Product used for unknown indication
     Dosage: 5 MG
     Route: 065
  6. IRON [Suspect]
     Active Substance: IRON
     Indication: Product used for unknown indication
     Dosage: UNK, ^TWICE TO THRICE WITH GREATER INTERVALS^
     Route: 042
     Dates: start: 1995, end: 2011
  7. IRON [Suspect]
     Active Substance: IRON
     Dosage: UNK
  8. BUDO-SAN [Concomitant]
     Indication: Crohn^s disease
     Dosage: 3 MG, 2 IN 1 D
     Route: 048
  9. CALCIUM [Concomitant]
     Active Substance: CALCIUM
     Indication: Crohn^s disease
     Dosage: UNK
     Route: 065
  10. ERGOCALCIFEROL [Concomitant]
     Active Substance: ERGOCALCIFEROL
     Indication: Product used for unknown indication
     Dosage: UNKNOWN
     Route: 065
  11. ADALIMUMAB [Concomitant]
     Active Substance: ADALIMUMAB
     Indication: Crohn^s disease
     Dosage: 40 MG,1 IN 1 WK
     Route: 058
  12. MESALAMINE [Concomitant]
     Active Substance: MESALAMINE
     Indication: Crohn^s disease
     Dosage: 4000 MG,1 IN 1 D
     Route: 048

REACTIONS (7)
  - Foot fracture [Recovered/Resolved]
  - Bone marrow oedema [Recovering/Resolving]
  - Serum ferritin increased [Recovering/Resolving]
  - Urine phosphorus increased [Recovering/Resolving]
  - Blood alkaline phosphatase increased [Recovering/Resolving]
  - Hypophosphataemia [Unknown]
  - Product preparation issue [Recovering/Resolving]

NARRATIVE: CASE EVENT DATE: 20130101
